FAERS Safety Report 8921414 (Version 1)
Quarter: 2012Q4

REPORT INFORMATION
  Report Type: 
  Country: GB (occurrence: GB)
  Receive Date: 20121121
  Receipt Date: 20121121
  Transmission Date: 20130627
  Serious: Yes (Other)
  Sender: FDA-Public Use
  Company Number: GB-WATSON-2012-19669

PATIENT
  Age: 48 Year
  Sex: Female
  Weight: 127 kg

DRUGS (3)
  1. RAMIPRIL (UNKNOWN) [Suspect]
     Indication: PRODUCT USED FOR UNKNOWN INDICATION
     Dosage: Unknown
     Route: 048
     Dates: start: 20121001
  2. VENLAFAXINE [Concomitant]
     Indication: PRODUCT USED FOR UNKNOWN INDICATION
     Dosage: Unknown
     Route: 065
     Dates: start: 20120622, end: 20121017
  3. ESOMEPRAZOLE [Concomitant]
     Indication: PRODUCT USED FOR UNKNOWN INDICATION
     Dosage: Unknown
     Route: 065
     Dates: start: 20120622, end: 20121017

REACTIONS (2)
  - Oral pain [Recovered/Resolved]
  - Gingival pain [Recovered/Resolved]
